FAERS Safety Report 7201429-9 (Version None)
Quarter: 2010Q4

REPORT INFORMATION
  Report Type: 
  Country: None (occurrence: None)
  Receive Date: 20101227
  Receipt Date: 20101227
  Transmission Date: 20110411
  Serious: Yes (Hospitalization, Other)
  Sender: FDA-Public Use
  Company Number: None

PATIENT
  Age: 18 Year
  Sex: Female
  Weight: 55.3388 kg

DRUGS (1)
  1. PROPOXYPHENE HCL AND ACETAMINOPHEN [Suspect]
     Indication: HEAD INJURY
     Dosage: 1-2 PILL -S- 4-6 HOURS PO
     Route: 048
     Dates: start: 20101101, end: 20101116

REACTIONS (3)
  - DIZZINESS POSTURAL [None]
  - HEADACHE [None]
  - PRODUCT QUALITY ISSUE [None]
